FAERS Safety Report 7536697-7 (Version None)
Quarter: 2011Q2

REPORT INFORMATION
  Report Type: 
  Country: None (occurrence: None)
  Receive Date: 20110609
  Receipt Date: 20110523
  Transmission Date: 20111010
  Serious: Yes (Hospitalization, Congenital Anomaly)
  Sender: FDA-Public Use
  Company Number: A0930769A

PATIENT
  Sex: Female

DRUGS (2)
  1. VITAMIN AND MINERAL PRENATAL SUPPLEMENT W/ FOLIC ACID CAP [Concomitant]
  2. PAXIL [Suspect]
     Indication: ANXIETY
     Dosage: 30MG PER DAY
     Route: 064

REACTIONS (4)
  - FIBULA AGENESIS [None]
  - LIMB REDUCTION DEFECT [None]
  - SCOLIOSIS [None]
  - DRUG EXPOSURE DURING PREGNANCY [None]
